FAERS Safety Report 21588211 (Version 1)
Quarter: 2022Q4

REPORT INFORMATION
  Report Type: Spontaneous
  Country: JP (occurrence: JP)
  Receive Date: 20221114
  Receipt Date: 20221114
  Transmission Date: 20230112
  Serious: Yes (Other)
  Sender: FDA-Public Use
  Company Number: JP-002147023-NVSJ2022JP100374

PATIENT
  Age: 42 Year
  Sex: Male

DRUGS (4)
  1. XOLAIR [Suspect]
     Active Substance: OMALIZUMAB
     Indication: Urticaria
     Dosage: UNK
     Route: 058
     Dates: start: 20221026
  2. PREDONINE [Concomitant]
     Active Substance: PREDNISOLONE
     Indication: Urticaria
     Dosage: 2.5 MG
  3. PREDONINE [Concomitant]
     Active Substance: PREDNISOLONE
     Dosage: 22.5 MG
     Dates: start: 20221028, end: 20221028
  4. PREDONINE [Concomitant]
     Active Substance: PREDNISOLONE
     Dates: start: 20221031

REACTIONS (5)
  - Enterocolitis [Unknown]
  - Chills [Recovering/Resolving]
  - Malaise [Recovering/Resolving]
  - Pyrexia [Recovering/Resolving]
  - Diarrhoea [Unknown]

NARRATIVE: CASE EVENT DATE: 20221026
